FAERS Safety Report 16564335 (Version 2)
Quarter: 2025Q1

REPORT INFORMATION
  Report Type: Report from Study
  Country: NL (occurrence: NL)
  Receive Date: 20190712
  Receipt Date: 20250116
  Transmission Date: 20250408
  Serious: Yes (Congenital Anomaly, Other)
  Sender: AUROBINDO
  Company Number: NL-AUROBINDO-AUR-APL-2019-039730

PATIENT
  Sex: Female

DRUGS (9)
  1. CETIRIZINE HYDROCHLORIDE [Suspect]
     Active Substance: CETIRIZINE HYDROCHLORIDE
     Indication: Product used for unknown indication
     Route: 064
  2. CETIRIZINE HYDROCHLORIDE [Suspect]
     Active Substance: CETIRIZINE HYDROCHLORIDE
     Route: 064
  3. LEVOCETIRIZINE [Suspect]
     Active Substance: LEVOCETIRIZINE
     Indication: Nausea
     Route: 064
  4. LEVOCETIRIZINE [Suspect]
     Active Substance: LEVOCETIRIZINE
     Indication: Vomiting
     Route: 064
  5. MECLIZINE\PYRIDOXINE [Suspect]
     Active Substance: MECLIZINE\PYRIDOXINE
     Indication: Antiemetic supportive care
     Route: 064
  6. MECLIZINE [Suspect]
     Active Substance: MECLIZINE HYDROCHLORIDE
     Indication: Antiemetic supportive care
     Route: 064
  7. PHENOTHIAZINE [Suspect]
     Active Substance: PHENOTHIAZINE
     Indication: Nausea
     Route: 064
  8. PHENOTHIAZINE [Suspect]
     Active Substance: PHENOTHIAZINE
     Indication: Vomiting
     Route: 064
  9. CYCLIZINE [Suspect]
     Active Substance: CYCLIZINE
     Indication: Antiemetic supportive care
     Route: 064

REACTIONS (6)
  - Atrioventricular septal defect [Unknown]
  - Fallot^s tetralogy [Unknown]
  - Transposition of the great vessels [Unknown]
  - Ventricular septal defect [Unknown]
  - Heart disease congenital [Unknown]
  - Foetal exposure during pregnancy [Unknown]
